FAERS Safety Report 8248970-8 (Version None)
Quarter: 2012Q2

REPORT INFORMATION
  Report Type: 
  Country: None (occurrence: None)
  Receive Date: 20120402
  Receipt Date: 20120322
  Transmission Date: 20120825
  Serious: Yes (Hospitalization)
  Sender: FDA-Public Use
  Company Number: FR-BIOGENIDEC-2012BI004792

PATIENT
  Age: 45 Year
  Sex: Female

DRUGS (4)
  1. TYSABRI [Suspect]
     Indication: MULTIPLE SCLEROSIS
     Route: 042
     Dates: start: 20110414, end: 20120202
  2. AMANTADINE HCL [Concomitant]
     Dates: end: 20120202
  3. TEGRETOL [Concomitant]
     Route: 048
     Dates: start: 20110501, end: 20120202
  4. GABAPENTIN [Concomitant]
     Dates: end: 20120202

REACTIONS (2)
  - GASTROENTERITIS [None]
  - BONE MARROW FAILURE [None]
